FAERS Safety Report 12225959 (Version 4)
Quarter: 2020Q2

REPORT INFORMATION
  Report Type: Report from Study
  Country: US (occurrence: US)
  Receive Date: 20160331
  Receipt Date: 20200427
  Transmission Date: 20200713
  Serious: Yes (Other)
  Sender: FDA-Public Use
  Company Number: US-BRISTOL-MYERS SQUIBB COMPANY-BMS-2016-023498

PATIENT
  Sex: Female

DRUGS (1)
  1. APIXABAN [Suspect]
     Active Substance: APIXABAN
     Indication: FACTOR V LEIDEN CARRIER
     Dosage: 5 MG, UNK
     Route: 048

REACTIONS (4)
  - Pain in extremity [Unknown]
  - Thrombosis [Unknown]
  - Intentional product use issue [Unknown]
  - Varicose vein [Unknown]
